FAERS Safety Report 17762867 (Version 1)
Quarter: 2020Q2

REPORT INFORMATION
  Report Type: Spontaneous
  Country: CH (occurrence: CH)
  Receive Date: 20200508
  Receipt Date: 20200508
  Transmission Date: 20200714
  Serious: Yes (Other)
  Sender: FDA-Public Use
  Company Number: CH-OTSUKA-2020_011398

PATIENT
  Age: 32 Year
  Sex: Female

DRUGS (6)
  1. VALIUM [Concomitant]
     Active Substance: DIAZEPAM
     Indication: PRODUCT USED FOR UNKNOWN INDICATION
     Dosage: UNK
     Route: 048
     Dates: start: 20200228, end: 20200310
  2. VALIUM [Concomitant]
     Active Substance: DIAZEPAM
     Dosage: 30 MG, QD
     Route: 048
     Dates: start: 20200311
  3. ABILIFY [Suspect]
     Active Substance: ARIPIPRAZOLE
     Indication: PRODUCT USED FOR UNKNOWN INDICATION
     Dosage: UNK
     Route: 048
     Dates: start: 20200228, end: 20200310
  4. QUILONORM [Concomitant]
     Active Substance: LITHIUM
     Indication: PRODUCT USED FOR UNKNOWN INDICATION
     Dosage: 12.2 MMOL, UNK
     Route: 048
     Dates: start: 20200228, end: 20200324
  5. ABILIFY [Suspect]
     Active Substance: ARIPIPRAZOLE
     Dosage: 15 MG, QD
     Route: 048
  6. QUILONORM [Concomitant]
     Active Substance: LITHIUM
     Dosage: 3 DF, QD (3 TABS/DAY (1.5-0-1.5) (36.6 MMOL/DAY 18.3-0-18.3)
     Route: 048
     Dates: start: 20200325

REACTIONS (2)
  - Ciliary muscle spasm [Not Recovered/Not Resolved]
  - Sinusitis [Unknown]

NARRATIVE: CASE EVENT DATE: 202003
